FAERS Safety Report 13691933 (Version 1)
Quarter: 2017Q2

REPORT INFORMATION
  Report Type: Spontaneous
  Country: US (occurrence: US)
  Receive Date: 20170626
  Receipt Date: 20170626
  Transmission Date: 20170830
  Serious: No
  Sender: FDA-Public Use
  Company Number: US-BRACCO-013618

PATIENT
  Age: 61 Year
  Sex: Female

DRUGS (1)
  1. MULTIHANCE [Suspect]
     Active Substance: GADOBENATE DIMEGLUMINE
     Indication: NUCLEAR MAGNETIC RESONANCE IMAGING
     Route: 042
     Dates: start: 20160602, end: 20160602

REACTIONS (3)
  - Nausea [Unknown]
  - Hypotension [Unknown]
  - Pallor [Unknown]

NARRATIVE: CASE EVENT DATE: 20160602
